FAERS Safety Report 17049675 (Version 3)
Quarter: 2020Q1

REPORT INFORMATION
  Report Type: Report from Study
  Country: US (occurrence: US)
  Receive Date: 20191119
  Receipt Date: 20200316
  Transmission Date: 20200409
  Serious: Yes (Hospitalization)
  Sender: FDA-Public Use
  Company Number: US-EXELIXIS-XL18419025260

PATIENT
  Age: 67 Year
  Sex: Male
  Weight: 104.8 kg

DRUGS (19)
  1. TOPROL XL [Concomitant]
     Active Substance: METOPROLOL SUCCINATE
  2. KLOR-CON [Concomitant]
     Active Substance: POTASSIUM CHLORIDE
  3. XL184 [Suspect]
     Active Substance: CABOZANTINIB
     Indication: NON-SMALL CELL LUNG CANCER
     Dosage: 60 MG, QD
     Route: 048
     Dates: start: 20190918, end: 20191109
  4. LIPITOR [Concomitant]
     Active Substance: ATORVASTATIN CALCIUM
  5. XYLOCAINE [Concomitant]
     Active Substance: LIDOCAINE HYDROCHLORIDE
  6. INSPRA [Concomitant]
     Active Substance: EPLERENONE
  7. APRESOLINE HYDROCHLORIDE [Concomitant]
     Active Substance: HYDRALAZINE HYDROCHLORIDE
  8. ISORDIL [Concomitant]
     Active Substance: ISOSORBIDE DINITRATE
  9. XL184 [Suspect]
     Active Substance: CABOZANTINIB
     Dosage: 60 MG, QD
     Route: 048
     Dates: start: 20191224
  10. MYCOSTATIN [Concomitant]
     Active Substance: NYSTATIN
  11. COMPAZINE [Concomitant]
     Active Substance: PROCHLORPERAZINE MALEATE
  12. CLEOCIN T [Concomitant]
     Active Substance: CLINDAMYCIN PHOSPHATE
  13. LANOXIN [Concomitant]
     Active Substance: DIGOXIN
  14. FOLVITE [Concomitant]
     Active Substance: FOLIC ACID
  15. PRAVACHOL [Concomitant]
     Active Substance: PRAVASTATIN SODIUM
  16. IMDUR [Concomitant]
     Active Substance: ISOSORBIDE MONONITRATE
  17. CARAFATE [Concomitant]
     Active Substance: SUCRALFATE
  18. ASPIRIN. [Concomitant]
     Active Substance: ASPIRIN
  19. LOPRESSOR [Concomitant]
     Active Substance: METOPROLOL TARTRATE

REACTIONS (1)
  - Appendicitis perforated [Recovered/Resolved]

NARRATIVE: CASE EVENT DATE: 20191109
